FAERS Safety Report 10194351 (Version 2)
Quarter: 2014Q2

REPORT INFORMATION
  Report Type: Spontaneous
  Country: US (occurrence: US)
  Receive Date: 20140526
  Receipt Date: 20140526
  Transmission Date: 20141212
  Serious: Yes (Hospitalization, Other)
  Sender: FDA-Public Use
  Company Number: US-BIOGENIDEC-2014BI046139

PATIENT
  Age: 53 Year
  Sex: Male

DRUGS (1)
  1. TECFIDERA [Suspect]
     Indication: MULTIPLE SCLEROSIS
     Dates: start: 20130501, end: 20140408

REACTIONS (8)
  - Blood alkaline phosphatase increased [Recovered/Resolved with Sequelae]
  - Aspartate aminotransferase increased [Recovered/Resolved with Sequelae]
  - Alanine aminotransferase increased [Recovered/Resolved with Sequelae]
  - Cystitis [Unknown]
  - Hepatic congestion [Recovered/Resolved with Sequelae]
  - Asthenia [Not Recovered/Not Resolved]
  - Mental status changes [Recovered/Resolved with Sequelae]
  - Hallucination [Unknown]
